FAERS Safety Report 10557700 (Version 2)
Quarter: 2014Q4

REPORT INFORMATION
  Report Type: Spontaneous
  Country: CH (occurrence: CH)
  Receive Date: 20141031
  Receipt Date: 20141111
  Transmission Date: 20150529
  Serious: Yes (Other)
  Sender: FDA-Public Use
  Company Number: CH-BAYER-2014-159176

PATIENT
  Age: 31 Year
  Sex: Female
  Weight: 62 kg

DRUGS (1)
  1. MIRENA [Suspect]
     Active Substance: LEVONORGESTREL
     Dosage: 20 MCG/24HR, CONT
     Route: 015
     Dates: start: 201301, end: 20140925

REACTIONS (5)
  - Haemorrhagic anaemia [None]
  - Device expulsion [None]
  - Endometrial atrophy [None]
  - Genital haemorrhage [Unknown]
  - Amenorrhoea [Unknown]

NARRATIVE: CASE EVENT DATE: 2013
